FAERS Safety Report 25303885 (Version 1)
Quarter: 2025Q2

REPORT INFORMATION
  Report Type: Spontaneous
  Country: GB (occurrence: GB)
  Receive Date: 20250513
  Receipt Date: 20250513
  Transmission Date: 20250717
  Serious: Yes (Disabling, Other)
  Sender: ACCORD
  Company Number: None

PATIENT
  Age: 18 Year
  Sex: Female
  Weight: 60 kg

DRUGS (1)
  1. SERTRALINE [Suspect]
     Active Substance: SERTRALINE HYDROCHLORIDE
     Indication: Depression
     Dates: start: 20241120, end: 20250407

REACTIONS (5)
  - Hallucination [Recovering/Resolving]
  - Paranoia [Recovered/Resolved with Sequelae]
  - Dissociation [Not Recovered/Not Resolved]
  - Nightmare [Recovering/Resolving]
  - Night sweats [Recovered/Resolved with Sequelae]

NARRATIVE: CASE EVENT DATE: 20241226
